FAERS Safety Report 4703083-4 (Version None)
Quarter: 2005Q2

REPORT INFORMATION
  Report Type: 
  Country: None (occurrence: None)
  Receive Date: 20050624
  Receipt Date: 20050425
  Transmission Date: 20051028
  Serious: No
  Sender: FDA-Public Use
  Company Number: 2005BI009918

PATIENT
  Age: 42 Year
  Sex: Female

DRUGS (2)
  1. AVONEX [Suspect]
     Indication: MULTIPLE SCLEROSIS
     Dosage: UNKNOWN;IM
     Route: 030
     Dates: start: 19960101
  2. NATALIZUMAB [Suspect]
     Indication: MULTIPLE SCLEROSIS
     Dosage: UNKNOWN;IV
     Route: 042
     Dates: start: 20050201, end: 20050201

REACTIONS (6)
  - DEPRESSION [None]
  - FATIGUE [None]
  - MEMORY IMPAIRMENT [None]
  - MUSCULOSKELETAL STIFFNESS [None]
  - PAIN IN EXTREMITY [None]
  - STRESS [None]
